FAERS Safety Report 8369791-1 (Version None)
Quarter: 2012Q1

REPORT INFORMATION
  Report Type: 
  Country: None (occurrence: None)
  Receive Date: 20120323
  Receipt Date: 20111005
  Transmission Date: 20120608
  Serious: Yes (Hospitalization)
  Sender: FDA-Public Use
  Company Number: 163-21880-11080308

PATIENT
  Age: 78 Year
  Sex: Female
  Weight: 72.57 kg

DRUGS (4)
  1. REVLIMID [Suspect]
     Indication: MYELODYSPLASTIC SYNDROME
     Dosage: 5 MG, 1 IN 1 D, PO : 10 MG, 1 IN 1 D, PO : 5 MG, 1 IN 1 D, PO : 2.5 MG, 1 IN 2 D, PO
     Route: 048
     Dates: start: 20110101, end: 20110201
  2. REVLIMID [Suspect]
     Indication: MYELODYSPLASTIC SYNDROME
     Dosage: 5 MG, 1 IN 1 D, PO : 10 MG, 1 IN 1 D, PO : 5 MG, 1 IN 1 D, PO : 2.5 MG, 1 IN 2 D, PO
     Route: 048
     Dates: start: 20110201, end: 20110301
  3. REVLIMID [Suspect]
     Indication: MYELODYSPLASTIC SYNDROME
     Dosage: 5 MG, 1 IN 1 D, PO : 10 MG, 1 IN 1 D, PO : 5 MG, 1 IN 1 D, PO : 2.5 MG, 1 IN 2 D, PO
     Route: 048
     Dates: start: 20110301, end: 20110101
  4. REVLIMID [Suspect]
     Indication: MYELODYSPLASTIC SYNDROME
     Dosage: 5 MG, 1 IN 1 D, PO : 10 MG, 1 IN 1 D, PO : 5 MG, 1 IN 1 D, PO : 2.5 MG, 1 IN 2 D, PO
     Route: 048
     Dates: start: 20110601, end: 20110901

REACTIONS (4)
  - DRUG INEFFECTIVE [None]
  - RENAL FAILURE [None]
  - ASTHENIA [None]
  - HYPOPHAGIA [None]
